FAERS Safety Report 9748952 (Version 2)
Quarter: 2013Q4

REPORT INFORMATION
  Report Type: Spontaneous
  Country: US (occurrence: US)
  Receive Date: 20131212
  Receipt Date: 20131212
  Transmission Date: 20140711
  Serious: Yes (Other)
  Sender: FDA-Public Use
  Company Number: US-SA-2013SA097173

PATIENT
  Sex: Male

DRUGS (2)
  1. SOLOSTAR [Suspect]
  2. LANTUS SOLOSTAR [Suspect]
     Route: 065

REACTIONS (1)
  - Injury associated with device [Unknown]
